FAERS Safety Report 19367470 (Version 1)
Quarter: 2021Q2

REPORT INFORMATION
  Report Type: Spontaneous
  Country: US (occurrence: US)
  Receive Date: 20210602
  Receipt Date: 20210602
  Transmission Date: 20210717
  Serious: No
  Sender: FDA-Public Use
  Company Number: US-ROCHE-2818428

PATIENT
  Sex: Male
  Weight: 10.22 kg

DRUGS (10)
  1. EVRYSDI [Suspect]
     Active Substance: RISDIPLAM
  2. EVRYSDI [Suspect]
     Active Substance: RISDIPLAM
     Indication: SPINAL MUSCULAR ATROPHY
     Dosage: ROUTE OF ADMINISTRATION: FEEDING TUBE; ONGOING: NO
     Route: 048
     Dates: start: 20210329
  3. EVRYSDI [Suspect]
     Active Substance: RISDIPLAM
  4. EVRYSDI [Suspect]
     Active Substance: RISDIPLAM
  5. EVRYSDI [Suspect]
     Active Substance: RISDIPLAM
  6. EVRYSDI [Suspect]
     Active Substance: RISDIPLAM
  7. EVRYSDI [Suspect]
     Active Substance: RISDIPLAM
  8. EVRYSDI [Suspect]
     Active Substance: RISDIPLAM
  9. EVRYSDI [Suspect]
     Active Substance: RISDIPLAM
     Dosage: ROUTE OF ADMINISTRATION: FEEDING TUBE; ONGOING: YES
     Route: 050
  10. EVRYSDI [Suspect]
     Active Substance: RISDIPLAM

REACTIONS (3)
  - Wrong dose [Unknown]
  - Weight increased [Not Recovered/Not Resolved]
  - Product label issue [Unknown]
